FAERS Safety Report 15765421 (Version 1)
Quarter: 2018Q4

REPORT INFORMATION
  Report Type: Spontaneous
  Country: US (occurrence: US)
  Receive Date: 20181218
  Receipt Date: 20181218
  Transmission Date: 20190205
  Serious: No
  Sender: FDA-Public Use
  Company Number: None

PATIENT

DRUGS (2)
  1. AMIKACIN SULFATE. [Suspect]
     Active Substance: AMIKACIN SULFATE
     Dosage: ?          OTHER DOSE:VIAL;OTHER ROUTE:INJECTION?
  2. METOCLOPRAMIDE. [Suspect]
     Active Substance: METOCLOPRAMIDE
     Dosage: ?          OTHER DOSE:VIAL;OTHER ROUTE:INJECTION?

REACTIONS (2)
  - Wrong product stored [None]
  - Product appearance confusion [None]
